FAERS Safety Report 24822192 (Version 1)
Quarter: 2025Q1

REPORT INFORMATION
  Report Type: Spontaneous
  Country: US (occurrence: US)
  Receive Date: 20250108
  Receipt Date: 20250108
  Transmission Date: 20250409
  Serious: No
  Sender: THEA PHARMA INC.
  Company Number: US-THEA-2024002436

PATIENT
  Age: 75 Year
  Sex: Male

DRUGS (3)
  1. IYUZEH [Suspect]
     Active Substance: LATANOPROST
     Indication: Intraocular pressure increased
     Dosage: ON THE LEFT EYE
     Route: 047
     Dates: start: 202410, end: 20241018
  2. OFLOXACIN [Concomitant]
     Active Substance: OFLOXACIN
     Indication: Infection prophylaxis
     Route: 047
  3. PREDNISOLONE [Concomitant]
     Active Substance: PREDNISOLONE
     Indication: Infection prophylaxis
     Route: 047

REACTIONS (1)
  - Drug hypersensitivity [Recovered/Resolved]

NARRATIVE: CASE EVENT DATE: 20241001
